FAERS Safety Report 5255120-9 (Version None)
Quarter: 2007Q1

REPORT INFORMATION
  Report Type: 
  Country: None (occurrence: None)
  Receive Date: 20070228
  Receipt Date: 20070213
  Transmission Date: 20070707
  Serious: Yes (Other)
  Sender: FDA-Public Use
  Company Number: 8020158

PATIENT
  Age: 39 Year
  Sex: Female

DRUGS (3)
  1. KEPPRA [Suspect]
     Dosage: 500 MG /D PO
     Route: 048
     Dates: start: 20060101
  2. PHENYTOIN [Concomitant]
  3. VALPROATE SODIUM [Concomitant]

REACTIONS (8)
  - AUTOIMMUNE HEPATITIS [None]
  - CARDIAC ARREST [None]
  - HEPATOCELLULAR DAMAGE [None]
  - HEPATOTOXICITY [None]
  - HYPONATRAEMIA [None]
  - POLYURIA [None]
  - SINUS ARREST [None]
  - SUPRAVENTRICULAR EXTRASYSTOLES [None]
